FAERS Safety Report 24417638 (Version 1)
Quarter: 2024Q4

REPORT INFORMATION
  Report Type: Other
  Country: AU (occurrence: AU)
  Receive Date: 20241009
  Receipt Date: 20241009
  Transmission Date: 20250115
  Serious: Yes (Other)
  Sender: B BRAUN
  Company Number: AU-B.Braun Medical Inc.-2162642

PATIENT
  Age: 55 Year
  Sex: Male

DRUGS (4)
  1. HEPARIN SODIUM IN DEXTROSE [Suspect]
     Active Substance: HEPARIN SODIUM
     Indication: Anticoagulant therapy
  2. Tiger snake antivenom (Seqirus, Parkville) [Concomitant]
  3. FRESH FROZEN PLASMA [Concomitant]
     Active Substance: HUMAN PLASMA
  4. Brown snake antivenom (Seqirus, ?Parkville) [Concomitant]

REACTIONS (1)
  - Drug ineffective [Unknown]
